FAERS Safety Report 9413653 (Version 1)
Quarter: 2013Q3

REPORT INFORMATION
  Report Type: Spontaneous
  Country: US (occurrence: US)
  Receive Date: 20130722
  Receipt Date: 20130722
  Transmission Date: 20140515
  Serious: Yes (Hospitalization, Other)
  Sender: FDA-Public Use
  Company Number: US-RB-056297-13

PATIENT
  Age: 0 None
  Sex: Female

DRUGS (11)
  1. SUBOXONE TABLET [Suspect]
     Route: 064
     Dates: start: 201203, end: 20121122
  2. SUBOXONE TABLET [Suspect]
     Indication: DRUG DEPENDENCE
     Route: 063
     Dates: start: 20121129, end: 201304
  3. HEROIN [Suspect]
     Indication: DRUG DEPENDENCE
     Dosage: UNKNOWN DOSING DETAILS
     Route: 064
     Dates: start: 201209, end: 201209
  4. NICOTINE [Suspect]
     Indication: NICOTINE DEPENDENCE
     Dosage: DOSING DETAILS UNKNOWN
     Route: 064
  5. IMITREX [Suspect]
     Indication: MIGRAINE
     Dosage: UNKNOWN DOSE TAKEN AS NEEDED
     Route: 064
     Dates: start: 201203, end: 20121122
  6. IMITREX [Suspect]
     Dosage: DOSE UNKNOWN
     Route: 063
     Dates: start: 20121129, end: 201304
  7. VALTREX [Suspect]
     Dosage: DOSING DETAILS UNKNOWN
     Route: 064
     Dates: start: 201203, end: 20121122
  8. VALTREX [Suspect]
     Indication: HERPES VIRUS INFECTION
     Dosage: DOSING DETAILS UNKNOWN
     Route: 063
     Dates: start: 20121129, end: 201304
  9. SEROQUEL [Suspect]
     Indication: SLEEP DISORDER
     Dosage: DOSING DETAILS UNKNOWN
     Route: 064
     Dates: start: 201203, end: 20121122
  10. VITAMINS [Suspect]
     Indication: ROUTINE HEALTH MAINTENANCE
     Dosage: DOSING DETAILS UNKNOWN
     Route: 064
     Dates: start: 201203, end: 20121122
  11. NEXIUM [Suspect]
     Indication: DYSPEPSIA
     Dosage: DOSING DETAILS UNKNOWN
     Route: 064

REACTIONS (4)
  - Foetal exposure during pregnancy [Recovered/Resolved]
  - Low birth weight baby [Recovered/Resolved]
  - Drug withdrawal syndrome neonatal [Recovered/Resolved]
  - Exposure during breast feeding [Recovered/Resolved]
